FAERS Safety Report 5598178-X (Version None)
Quarter: 2008Q1

REPORT INFORMATION
  Report Type: 
  Country: None (occurrence: None)
  Receive Date: 20080117
  Receipt Date: 20080117
  Transmission Date: 20080703
  Serious: Yes (Hospitalization)
  Sender: FDA-Public Use
  Company Number: None

PATIENT
  Age: 74 Year
  Sex: Male
  Weight: 86 kg

DRUGS (2)
  1. METOLAZONE [Suspect]
     Indication: CARDIAC FAILURE CONGESTIVE
     Dosage: 10MG  BID  PO
     Route: 048
     Dates: start: 20071209
  2. LISINOPRIL [Suspect]
     Indication: CARDIAC FAILURE CONGESTIVE
     Dosage: 10MG EVERY DAY PO
     Route: 048
     Dates: start: 20071202, end: 20071219

REACTIONS (1)
  - RENAL FAILURE [None]
